APPROVED DRUG PRODUCT: NALBUPHINE HYDROCHLORIDE
Active Ingredient: NALBUPHINE HYDROCHLORIDE
Strength: 20MG/ML (20MG/ML)
Dosage Form/Route: SOLUTION;INTRAMUSCULAR, INTRAVENOUS, SUBCUTANEOUS
Application: A070917 | Product #001
Applicant: ABBOTT LABORATORIES HOSP PRODUCTS DIV
Approved: Feb 3, 1989 | RLD: No | RS: No | Type: DISCN